FAERS Safety Report 9865375 (Version 1)
Quarter: 2014Q1

REPORT INFORMATION
  Report Type: Spontaneous
  Country: US (occurrence: US)
  Receive Date: 20140203
  Receipt Date: 20140203
  Transmission Date: 20141002
  Serious: No
  Sender: FDA-Public Use
  Company Number: US-ALLERGAN-1303088US

PATIENT
  Age: 77 Year
  Sex: Female

DRUGS (1)
  1. RESTASIS [Suspect]
     Indication: PREOPERATIVE CARE
     Dosage: 2 GTT, BID
     Route: 047
     Dates: start: 20130131, end: 20130202

REACTIONS (2)
  - Off label use [Unknown]
  - Vomiting [Unknown]
